FAERS Safety Report 11704826 (Version 1)
Quarter: 2015Q4

REPORT INFORMATION
  Report Type: Spontaneous
  Country: US (occurrence: US)
  Receive Date: 20151106
  Receipt Date: 20151106
  Transmission Date: 20160304
  Serious: Yes (Life-Threatening, Hospitalization, Disabling)
  Sender: FDA-Public Use
  Company Number: US-BAYER-2015-455441

PATIENT
  Sex: Female

DRUGS (1)
  1. YASMIN [Suspect]
     Active Substance: DROSPIRENONE\ETHINYL ESTRADIOL
     Dosage: UNK
     Dates: start: 201101, end: 20140211

REACTIONS (38)
  - Cerebral haemorrhage [None]
  - Confusional state [None]
  - Cerebral artery occlusion [None]
  - Coordination abnormal [None]
  - Gait disturbance [None]
  - Hypertonia [None]
  - Head injury [None]
  - Gaze palsy [None]
  - Neurologic neglect syndrome [None]
  - Lethargy [None]
  - Memory impairment [None]
  - Anxiety [None]
  - Muscle spasticity [None]
  - Urinary retention [None]
  - Hemiplegia [None]
  - Brain oedema [None]
  - Impaired driving ability [None]
  - Brain midline shift [None]
  - Speech disorder [None]
  - Depression [None]
  - Disorientation [None]
  - VIIth nerve paralysis [None]
  - Cognitive disorder [None]
  - Pain in extremity [None]
  - Deep vein thrombosis [None]
  - Balance disorder [None]
  - Cerebrovascular accident [None]
  - Urinary tract infection [None]
  - Asthenia [None]
  - Exercise tolerance decreased [None]
  - Periarthritis [None]
  - Dysphagia [None]
  - Scar [None]
  - Hemiparesis [None]
  - Dysarthria [None]
  - Dysprosody [None]
  - Muscular weakness [None]
  - Arthralgia [None]

NARRATIVE: CASE EVENT DATE: 20140211
